FAERS Safety Report 25674459 (Version 1)
Quarter: 2025Q3

REPORT INFORMATION
  Report Type: Spontaneous
  Country: US (occurrence: US)
  Receive Date: 20250813
  Receipt Date: 20250813
  Transmission Date: 20251021
  Serious: Yes (Other)
  Sender: ZYDUS PHARM
  Company Number: US-CADILA HEALTHCARE LIMITED-US-ZYDUS-127231

PATIENT

DRUGS (4)
  1. IMATINIB [Suspect]
     Active Substance: IMATINIB
     Indication: Chronic myeloid leukaemia
     Route: 065
  2. PONATINIB [Suspect]
     Active Substance: PONATINIB
     Indication: Chronic myeloid leukaemia
     Route: 065
  3. NILOTINIB [Suspect]
     Active Substance: NILOTINIB
     Indication: B-cell type acute leukaemia
     Route: 065
  4. ASCIMINIB [Suspect]
     Active Substance: ASCIMINIB
     Indication: B-cell type acute leukaemia
     Route: 065

REACTIONS (3)
  - Gastrointestinal toxicity [Unknown]
  - Drug resistance [Unknown]
  - Treatment failure [Unknown]
